FAERS Safety Report 4561659-1 (Version None)
Quarter: 2005Q1

REPORT INFORMATION
  Report Type: 
  Country: None (occurrence: None)
  Receive Date: 20050124
  Receipt Date: 20050112
  Transmission Date: 20050727
  Serious: Yes (Other)
  Sender: FDA-Public Use
  Company Number: 2005014440

PATIENT
  Sex: Male

DRUGS (3)
  1. NEURONTIN [Suspect]
     Indication: ILL-DEFINED DISORDER
  2. VENLAFAXINE HCL [Suspect]
     Indication: ILL-DEFINED DISORDER
  3. OXYCODONE HYDROCHLORIDE AND ACETAMINOPHEN [Suspect]
     Indication: ILL-DEFINED DISORDER

REACTIONS (3)
  - INADEQUATE ANALGESIA [None]
  - NEUROPATHY [None]
  - PAIN IN EXTREMITY [None]
